FAERS Safety Report 23281479 (Version 1)
Quarter: 2023Q4

REPORT INFORMATION
  Report Type: Spontaneous
  Country: FR (occurrence: FR)
  Receive Date: 20231211
  Receipt Date: 20231211
  Transmission Date: 20240109
  Serious: Yes (Other)
  Sender: FDA-Public Use
  Company Number: FR-BRISTOL-MYERS SQUIBB COMPANY-2023-175391

PATIENT
  Age: 60 Year
  Sex: Female

DRUGS (1)
  1. ORENCIA [Suspect]
     Active Substance: ABATACEPT
     Indication: Polyarthritis
     Dosage: DOSE : UNAVAILABLE;     FREQ : UNAVAILABLE
     Route: 058
     Dates: start: 2018, end: 202305

REACTIONS (2)
  - Adenocarcinoma metastatic [Unknown]
  - Off label use [Unknown]
